FAERS Safety Report 8010400-9 (Version None)
Quarter: 2011Q4

REPORT INFORMATION
  Report Type: 
  Country: None (occurrence: None)
  Receive Date: 20111222
  Receipt Date: 20111212
  Transmission Date: 20120403
  Serious: Yes (Hospitalization, Other)
  Sender: FDA-Public Use
  Company Number: 2011P1014405

PATIENT
  Age: 58 Year
  Sex: Male

DRUGS (5)
  1. CITALOPRAM HYDROBROMIDE [Suspect]
     Indication: DEPRESSION
     Dosage: 40 MG;QD
  2. DOXAZOSIN MESYLATE [Concomitant]
  3. FENTANYL [Suspect]
     Indication: BACK PAIN
     Dosage: 75 UG/HR;Q3D;TDER 75 UG/HR;Q2D;TDER
     Route: 062
  4. CELECOXIB [Concomitant]
  5. ZOLPIDEM EXTENDED-RELEASE [Concomitant]

REACTIONS (13)
  - TACHYPNOEA [None]
  - AGITATION [None]
  - ANXIETY [None]
  - TREATMENT NONCOMPLIANCE [None]
  - YAWNING [None]
  - HYPERHIDROSIS [None]
  - CONFUSIONAL STATE [None]
  - HYPERTENSION [None]
  - SEROTONIN SYNDROME [None]
  - INADEQUATE ANALGESIA [None]
  - TREMOR [None]
  - INSOMNIA [None]
  - DRUG WITHDRAWAL SYNDROME [None]
